FAERS Safety Report 6401143-3 (Version None)
Quarter: 2009Q4

REPORT INFORMATION
  Report Type: 
  Country: None (occurrence: None)
  Receive Date: 20091015
  Receipt Date: 20070911
  Transmission Date: 20100525
  Serious: Yes (Disabling)
  Sender: FDA-Public Use
  Company Number: US-ASTRAZENECA-2006UW07839

PATIENT
  Sex: Male
  Weight: 90.9 kg

DRUGS (1)
  1. SEROQUEL [Suspect]
     Indication: MENTAL DISORDER
     Dosage: 5-750 MG
     Route: 048
     Dates: start: 20011127

REACTIONS (1)
  - ILL-DEFINED DISORDER [None]
